FAERS Safety Report 11815759 (Version 2)
Quarter: 2015Q4

REPORT INFORMATION
  Report Type: Spontaneous
  Country: US (occurrence: US)
  Receive Date: 20151209
  Receipt Date: 20151222
  Transmission Date: 20160305
  Serious: Yes (Other)
  Sender: FDA-Public Use
  Company Number: US-UNITED THERAPEUTICS-UNT-2015-015384

PATIENT
  Age: 62 Year
  Sex: Female
  Weight: 99.32 kg

DRUGS (2)
  1. TYVASO [Suspect]
     Active Substance: TREPROSTINIL
     Indication: PULMONARY ARTERIAL HYPERTENSION
     Dosage: 18-54 ?G, QID
     Dates: start: 20151030
  2. REVATIO [Concomitant]
     Active Substance: SILDENAFIL CITRATE
     Indication: PRODUCT USED FOR UNKNOWN INDICATION

REACTIONS (7)
  - Respiratory failure [Unknown]
  - Somnolence [Unknown]
  - Lethargy [Unknown]
  - Stomatitis [Unknown]
  - Oxygen saturation decreased [Unknown]
  - Gout [Unknown]
  - Palpitations [Unknown]

NARRATIVE: CASE EVENT DATE: 201511
